FAERS Safety Report 14031522 (Version 2)
Quarter: 2017Q4

REPORT INFORMATION
  Report Type: Spontaneous
  Country: JP (occurrence: JP)
  Receive Date: 20171002
  Receipt Date: 20171030
  Transmission Date: 20180321
  Serious: Yes (Death, Life-Threatening)
  Sender: FDA-Public Use
  Company Number: JP-GUERBET-JP-20170152

PATIENT
  Age: 75 Year
  Sex: Male

DRUGS (62)
  1. FAMOTIDINE. [Concomitant]
     Active Substance: FAMOTIDINE
     Indication: PRODUCT USED FOR UNKNOWN INDICATION
     Route: 048
     Dates: start: 20151002, end: 20151005
  2. SODIUM CHLORIDE. [Concomitant]
     Active Substance: SODIUM CHLORIDE
     Indication: PRODUCT USED FOR UNKNOWN INDICATION
     Route: 065
     Dates: start: 20151005, end: 20151006
  3. SOLYUGEN F [Concomitant]
     Indication: PRODUCT USED FOR UNKNOWN INDICATION
     Route: 065
     Dates: start: 20151001, end: 20151002
  4. SOLYUGEN F [Concomitant]
     Route: 065
     Dates: start: 20151003, end: 20151004
  5. FESIN [Concomitant]
     Active Substance: IRON SUCROSE
     Indication: PRODUCT USED FOR UNKNOWN INDICATION
     Dosage: 40MG, 2ML/1DF
     Route: 065
     Dates: start: 20151001, end: 20151007
  6. INTRALIPOS [Concomitant]
     Active Substance: SOYBEAN OIL
     Indication: PRODUCT USED FOR UNKNOWN INDICATION
     Dosage: 20%, 100ML/1DF
     Route: 065
     Dates: start: 20151005, end: 20151007
  7. ACELIO [Concomitant]
     Active Substance: ACETAMINOPHEN
     Dosage: 1000MG, 100ML/1DF
     Route: 042
     Dates: start: 20151007, end: 20151007
  8. LIPIODOL [Suspect]
     Active Substance: ETHIODIZED OIL
     Indication: LYMPHANGIOGRAM
     Route: 027
     Dates: start: 20151007, end: 20151007
  9. VERAPAMIL HYDROCHLORIDE. [Concomitant]
     Active Substance: VERAPAMIL HYDROCHLORIDE
     Route: 048
     Dates: start: 20151006, end: 20151007
  10. ROZEREM [Concomitant]
     Active Substance: RAMELTEON
     Route: 048
     Dates: start: 20151007, end: 20151007
  11. TETRAMIDE [Concomitant]
     Active Substance: MIANSERIN
     Indication: PRODUCT USED FOR UNKNOWN INDICATION
     Route: 048
     Dates: start: 20151003, end: 20151007
  12. SOLYUGEN G [Concomitant]
     Route: 065
     Dates: start: 20151004, end: 20151004
  13. BFLUID [Concomitant]
     Active Substance: AMINO ACIDS\DEXTROSE\ELECTROLYTES NOS\VITAMINS
     Indication: PRODUCT USED FOR UNKNOWN INDICATION
     Route: 065
     Dates: start: 20151005, end: 20151007
  14. SULBACILLIN [Concomitant]
     Active Substance: AMPICILLIN SODIUM\SULBACTAM SODIUM
     Route: 042
     Dates: start: 20151005, end: 20151005
  15. ONOACT [Concomitant]
     Active Substance: LANDIOLOL HYDROCHLORIDE
     Route: 041
     Dates: start: 20151003, end: 20151003
  16. SEISHOKU [Concomitant]
     Active Substance: SODIUM CHLORIDE
     Route: 065
     Dates: start: 20151003, end: 20151003
  17. SEISHOKU [Concomitant]
     Active Substance: SODIUM CHLORIDE
     Route: 065
     Dates: start: 20151004, end: 20151004
  18. DEXTROSE. [Concomitant]
     Active Substance: DEXTROSE
     Indication: PRODUCT USED FOR UNKNOWN INDICATION
     Dosage: 20%, 20ML/1DF
     Route: 065
     Dates: start: 20151005, end: 20151005
  19. VITAMEDIN [Concomitant]
     Active Substance: CYANOCOBALAMIN\PYRIDOXINE HYDROCHLORIDE\THIAMINE
     Indication: PRODUCT USED FOR UNKNOWN INDICATION
     Route: 065
     Dates: start: 20151001, end: 20151004
  20. KCL [Concomitant]
     Active Substance: POTASSIUM CHLORIDE
     Dosage: 20MEQ, 20ML/1DF
     Route: 065
     Dates: start: 20151004, end: 20151004
  21. ONOACT [Concomitant]
     Active Substance: LANDIOLOL HYDROCHLORIDE
     Route: 041
     Dates: start: 20151004, end: 20151004
  22. ACELIO [Concomitant]
     Active Substance: ACETAMINOPHEN
     Indication: PRODUCT USED FOR UNKNOWN INDICATION
     Dosage: 1000MG, 100ML/1DF
     Route: 042
     Dates: start: 20151004, end: 20151004
  23. SEISHOKU [Concomitant]
     Active Substance: SODIUM CHLORIDE
     Indication: PRODUCT USED FOR UNKNOWN INDICATION
     Route: 065
     Dates: start: 20151002, end: 20151002
  24. SEISHOKU [Concomitant]
     Active Substance: SODIUM CHLORIDE
     Route: 065
     Dates: start: 20151004, end: 20151005
  25. FENTANYL. [Concomitant]
     Active Substance: FENTANYL
     Indication: PRODUCT USED FOR UNKNOWN INDICATION
     Dosage: 0.5MG, 10ML/1DF
     Route: 065
     Dates: start: 20151001, end: 20151001
  26. ENEVO [Concomitant]
     Route: 065
     Dates: start: 20151002, end: 20151002
  27. VERAPAMIL HYDROCHLORIDE. [Concomitant]
     Active Substance: VERAPAMIL HYDROCHLORIDE
     Route: 048
     Dates: start: 20151004, end: 20151004
  28. VERAPAMIL HYDROCHLORIDE. [Concomitant]
     Active Substance: VERAPAMIL HYDROCHLORIDE
     Route: 048
     Dates: start: 20151005, end: 20151005
  29. ELENTAL [Concomitant]
     Active Substance: AMINO ACIDS\CARBOHYDRATES\MINERALS\SOYBEAN OIL\VITAMINS
     Indication: PRODUCT USED FOR UNKNOWN INDICATION
     Route: 048
     Dates: start: 20151005, end: 20151007
  30. KCL [Concomitant]
     Active Substance: POTASSIUM CHLORIDE
     Indication: PRODUCT USED FOR UNKNOWN INDICATION
     Dosage: 20MEQ, 20ML/1DF
     Route: 065
     Dates: start: 20151001, end: 20151001
  31. DEXTROSE. [Concomitant]
     Active Substance: DEXTROSE
     Indication: PRODUCT USED FOR UNKNOWN INDICATION
     Dosage: 5%, 100ML/1DF
     Route: 065
     Dates: start: 20151001, end: 20151007
  32. ISOTONIC SODIUM CHLORIDE SOLUTION KIT [Concomitant]
     Indication: PRODUCT USED FOR UNKNOWN INDICATION
     Route: 065
     Dates: start: 20151001, end: 20151004
  33. ISOTONIC SODIUM CHLORIDE SOLUTION KIT [Concomitant]
     Route: 065
     Dates: start: 20151005, end: 20151005
  34. SULBACILLIN [Concomitant]
     Active Substance: AMPICILLIN SODIUM\SULBACTAM SODIUM
     Indication: PRODUCT USED FOR UNKNOWN INDICATION
     Route: 042
     Dates: start: 20151001, end: 20151004
  35. ENEVO [Concomitant]
     Indication: PARENTERAL NUTRITION
     Route: 065
     Dates: start: 20151001, end: 20151001
  36. VERAPAMIL HYDROCHLORIDE. [Concomitant]
     Active Substance: VERAPAMIL HYDROCHLORIDE
     Indication: PRODUCT USED FOR UNKNOWN INDICATION
     Route: 048
     Dates: start: 20151003, end: 20151003
  37. SOLYUGEN G [Concomitant]
     Indication: PRODUCT USED FOR UNKNOWN INDICATION
     Route: 065
     Dates: start: 20151001, end: 20151003
  38. ISOTONIC SODIUM CHLORIDE SOLUTION KIT [Concomitant]
     Route: 065
     Dates: start: 20151007, end: 20151007
  39. DILTIAZEM HYDROCHLORIDE. [Concomitant]
     Active Substance: DILTIAZEM HYDROCHLORIDE
     Indication: PRODUCT USED FOR UNKNOWN INDICATION
     Route: 065
     Dates: start: 20151004, end: 20151005
  40. ROHYPNOL [Concomitant]
     Active Substance: FLUNITRAZEPAM
     Indication: PRODUCT USED FOR UNKNOWN INDICATION
     Dosage: 2MG, 1ML/1DF
     Route: 065
     Dates: start: 20151004, end: 20151005
  41. BELSOMRA [Concomitant]
     Active Substance: SUVOREXANT
     Indication: PRODUCT USED FOR UNKNOWN INDICATION
     Route: 050
     Dates: start: 20151006, end: 20151006
  42. SOLYUGEN G [Concomitant]
     Route: 065
     Dates: start: 20151007, end: 20151007
  43. TWINPAL [Concomitant]
     Active Substance: AMINO ACIDS\CARBOHYDRATES\ELECTROLYTES NOS\VITAMINS
     Indication: PRODUCT USED FOR UNKNOWN INDICATION
     Route: 065
     Dates: start: 20151005, end: 20151007
  44. ONOACT [Concomitant]
     Active Substance: LANDIOLOL HYDROCHLORIDE
     Route: 041
     Dates: start: 20151005, end: 20151005
  45. SEISHOKU [Concomitant]
     Active Substance: SODIUM CHLORIDE
     Route: 065
     Dates: start: 20151003, end: 20151003
  46. VASOLAN [Concomitant]
     Active Substance: VERAPAMIL HYDROCHLORIDE
     Indication: PRODUCT USED FOR UNKNOWN INDICATION
     Dosage: 5MG, 2ML/1DF
     Route: 065
     Dates: start: 20151003, end: 20151003
  47. VASOLAN [Concomitant]
     Active Substance: VERAPAMIL HYDROCHLORIDE
     Dosage: 5MG, 2ML/1DF
     Route: 065
     Dates: start: 20151004, end: 20151004
  48. ZOSYN [Concomitant]
     Active Substance: PIPERACILLIN SODIUM\TAZOBACTAM SODIUM
     Indication: PRODUCT USED FOR UNKNOWN INDICATION
     Route: 042
     Dates: start: 20151007, end: 20151007
  49. ROZEREM [Concomitant]
     Active Substance: RAMELTEON
     Indication: PRODUCT USED FOR UNKNOWN INDICATION
     Route: 048
     Dates: start: 20151002, end: 20151005
  50. ROZEREM [Concomitant]
     Active Substance: RAMELTEON
     Route: 048
     Dates: start: 20151006, end: 20151006
  51. FAMOTIDINE. [Concomitant]
     Active Substance: FAMOTIDINE
     Route: 048
     Dates: start: 20151007, end: 20151007
  52. CLEXANE [Concomitant]
     Active Substance: ENOXAPARIN SODIUM
     Indication: PRODUCT USED FOR UNKNOWN INDICATION
     Dosage: 2000IU, 0.2ML/1DF
     Route: 058
     Dates: start: 20151001, end: 20151005
  53. ONOACT [Concomitant]
     Active Substance: LANDIOLOL HYDROCHLORIDE
     Indication: PRODUCT USED FOR UNKNOWN INDICATION
     Route: 041
     Dates: start: 20151002, end: 20151002
  54. SEISHOKU [Concomitant]
     Active Substance: SODIUM CHLORIDE
     Route: 065
     Dates: start: 20151007, end: 20151007
  55. ENEVO [Concomitant]
     Route: 065
     Dates: start: 20151003, end: 20151003
  56. FAMOTIDINE. [Concomitant]
     Active Substance: FAMOTIDINE
     Route: 048
     Dates: start: 20151006, end: 20151006
  57. FAMOTIDINE. [Concomitant]
     Active Substance: FAMOTIDINE
     Route: 065
     Dates: start: 20151001, end: 20151001
  58. SODIUM CHLORIDE. [Concomitant]
     Active Substance: SODIUM CHLORIDE
     Route: 065
     Dates: start: 20151007, end: 20151007
  59. SEISHOKU [Concomitant]
     Active Substance: SODIUM CHLORIDE
     Indication: PRODUCT USED FOR UNKNOWN INDICATION
     Route: 065
     Dates: start: 20151002, end: 20151002
  60. SEISHOKU [Concomitant]
     Active Substance: SODIUM CHLORIDE
     Route: 065
     Dates: start: 20151005, end: 20151005
  61. SEISHOKU [Concomitant]
     Active Substance: SODIUM CHLORIDE
     Indication: PRODUCT USED FOR UNKNOWN INDICATION
     Route: 065
     Dates: start: 20151001, end: 20151001
  62. PILSICAINIDE HYDROCHLORIDE HYDRATE [Concomitant]
     Active Substance: PILSICAINIDE HYDROCHLORIDE HEMIHYDRATE
     Indication: PRODUCT USED FOR UNKNOWN INDICATION
     Dosage: 50MG, 5ML/1DF
     Route: 042
     Dates: start: 20151002, end: 20151003

REACTIONS (3)
  - Pulmonary embolism [Not Recovered/Not Resolved]
  - Acute respiratory distress syndrome [Fatal]
  - Product use in unapproved indication [Unknown]

NARRATIVE: CASE EVENT DATE: 20151007
